FAERS Safety Report 10595518 (Version 2)
Quarter: 2015Q1

REPORT INFORMATION
  Report Type: Spontaneous
  Country: FR (occurrence: None)
  Receive Date: 20141118
  Receipt Date: 20150202
  Transmission Date: 20150720
  Serious: Yes (Hospitalization, Other)
  Sender: FDA-Public Use
  Company Number: 20142318

PATIENT
  Age: 34 Year
  Sex: Female

DRUGS (5)
  1. METOJECT [Suspect]
     Active Substance: METHOTREXATE SODIUM
     Route: 058
     Dates: start: 20140903, end: 20141014
  2. TARDYFERON (FERROUS SULFATE) [Suspect]
     Active Substance: FERROUS SULFATE\FERROUS SULFATE, DRIED
     Route: 048
     Dates: end: 20141016
  3. FOLIC ACID. [Concomitant]
     Active Substance: FOLIC ACID
  4. TRAMADOL [Concomitant]
     Active Substance: TRAMADOL
  5. KALEORID (POTASSIUM CHLORIDE) [Concomitant]
     Active Substance: POTASSIUM CHLORIDE

REACTIONS (1)
  - Meningitis aseptic [None]

NARRATIVE: CASE EVENT DATE: 20141013
